FAERS Safety Report 5769378-0 (Version None)
Quarter: 2008Q2

REPORT INFORMATION
  Report Type: 
  Country: None (occurrence: None)
  Receive Date: 20080612
  Receipt Date: 20080331
  Transmission Date: 20081010
  Serious: No
  Sender: FDA-Public Use
  Company Number: US-ABBOTT-08P-163-0444593-00

PATIENT
  Sex: Female
  Weight: 87.168 kg

DRUGS (5)
  1. HUMIRA [Suspect]
     Indication: PSORIASIS
     Route: 058
     Dates: start: 20070101, end: 20080330
  2. HUMIRA [Suspect]
     Indication: PSORIATIC ARTHROPATHY
  3. LEFLUNOMIDE [Concomitant]
     Indication: PSORIATIC ARTHROPATHY
     Route: 048
  4. LEVOTHYROXINE SODIUM [Concomitant]
     Indication: HYPOTHYROIDISM
     Route: 048
  5. ESOMEPRAZOLE MAGNESIUM [Concomitant]
     Indication: GASTROOESOPHAGEAL REFLUX DISEASE
     Route: 048

REACTIONS (4)
  - CHEST PAIN [None]
  - PHARYNGEAL ERYTHEMA [None]
  - PHARYNGEAL INFLAMMATION [None]
  - PHARYNGOLARYNGEAL PAIN [None]
